FAERS Safety Report 6275156-9 (Version None)
Quarter: 2009Q3

REPORT INFORMATION
  Report Type: 
  Country: None (occurrence: None)
  Receive Date: 20090721
  Receipt Date: 20090709
  Transmission Date: 20100115
  Serious: Yes (Hospitalization)
  Sender: FDA-Public Use
  Company Number: BE-PFIZER INC-2009223750

PATIENT
  Age: 56 Year

DRUGS (7)
  1. EXEMESTANE [Suspect]
     Indication: BREAST CANCER
     Dosage: 25 MG, 1X/DAY
     Route: 048
     Dates: start: 20070330, end: 20080421
  2. TAMOXIFEN CITRATE [Suspect]
     Indication: BREAST CANCER
     Dosage: UNK
     Dates: start: 20041022, end: 20070329
  3. TAMOXIFEN CITRATE [Suspect]
     Dosage: UNK
     Dates: start: 20080422
  4. DILTIAZEM HCL [Concomitant]
     Dosage: UNK
     Route: 048
  5. AKTON [Concomitant]
     Dosage: UNK
     Route: 048
  6. TELMISARTAN [Concomitant]
     Dosage: UNK
     Route: 048
  7. SIMVASTATIN [Concomitant]
     Dosage: UNK
     Route: 048
     Dates: start: 20060504

REACTIONS (1)
  - PERIPHERAL ARTERIAL OCCLUSIVE DISEASE [None]
